FAERS Safety Report 8343394-7 (Version None)
Quarter: 2012Q1

REPORT INFORMATION
  Report Type: 
  Country: None (occurrence: None)
  Receive Date: 20120330
  Receipt Date: 20110919
  Transmission Date: 20120608
  Serious: Yes (Other)
  Sender: FDA-Public Use
  Company Number: PHEH2011US02123

PATIENT
  Age: 95 Year
  Sex: Female

DRUGS (1)
  1. EXELON [Suspect]
     Dosage: 9.5 MG, DAILY, TRANSDERMAL
     Route: 062

REACTIONS (1)
  - ATRIAL FIBRILLATION [None]
